FAERS Safety Report 5611635-2 (Version None)
Quarter: 2008Q1

REPORT INFORMATION
  Report Type: 
  Country: None (occurrence: None)
  Receive Date: 20080201
  Receipt Date: 20080125
  Transmission Date: 20080703
  Serious: Yes (Hospitalization)
  Sender: FDA-Public Use
  Company Number: US-ABBOTT-07P-163-0415229-00

PATIENT
  Sex: Male

DRUGS (6)
  1. RITONAVIR SOFT GELATIN CAPSULES [Suspect]
     Indication: HIV INFECTION
     Route: 048
  2. RITONAVIR SOFT GELATIN CAPSULES [Suspect]
  3. ATAZANAVIR SULFATE [Concomitant]
     Indication: HIV INFECTION
     Route: 048
  4. ATAZANAVIR SULFATE [Concomitant]
  5. ABACAVIR SULFATE W/LAMIVUDINE [Concomitant]
     Indication: HIV INFECTION
     Dosage: 600/300 MG
     Route: 048
  6. ABACAVIR SULFATE W/LAMIVUDINE [Concomitant]

REACTIONS (7)
  - DIARRHOEA [None]
  - HEADACHE [None]
  - HYPERBILIRUBINAEMIA [None]
  - HYPOAESTHESIA FACIAL [None]
  - NAUSEA [None]
  - VISION BLURRED [None]
  - VOMITING [None]
